FAERS Safety Report 21964829 (Version 1)
Quarter: 2023Q1

REPORT INFORMATION
  Report Type: Spontaneous
  Country: US (occurrence: US)
  Receive Date: 20230207
  Receipt Date: 20230207
  Transmission Date: 20230417
  Serious: No
  Sender: FDA-Public Use
  Company Number: US-009507513-2301USA009487

PATIENT

DRUGS (1)
  1. NOXAFIL [Suspect]
     Active Substance: POSACONAZOLE
     Dosage: 100 MILLIGRAM, QD (^2 TABS DAILY^)
     Route: 048

REACTIONS (3)
  - Product dose omission issue [Unknown]
  - Incorrect dose administered [Unknown]
  - No adverse event [Unknown]
